FAERS Safety Report 8504247-4 (Version None)
Quarter: 2012Q3

REPORT INFORMATION
  Report Type: 
  Country: None (occurrence: None)
  Receive Date: 20120711
  Receipt Date: 20120703
  Transmission Date: 20120928
  Serious: Yes (Life-Threatening)
  Sender: FDA-Public Use
  Company Number: JP-VERTEX PHARMACEUTICALS INC.-AE-2012-006235

PATIENT
  Age: 64 Year
  Sex: Female

DRUGS (11)
  1. PLAVIX [Concomitant]
     Route: 048
  2. AMLODIPINE [Concomitant]
     Route: 048
  3. CEROCRAL [Concomitant]
     Route: 048
  4. ALLOPURINOL [Concomitant]
     Route: 048
     Dates: start: 20120418, end: 20120503
  5. RIBAVIRIN [Concomitant]
     Indication: HEPATITIS C
     Route: 048
     Dates: start: 20120416, end: 20120425
  6. ASPIRIN [Concomitant]
     Route: 048
  7. OMEPRAZOLE [Concomitant]
     Route: 048
  8. TELAVIC (TELAPREVIR) [Suspect]
     Indication: HEPATITIS C
     Route: 048
     Dates: start: 20120416, end: 20120425
  9. PEGINTERFERON ALFA-2B [Concomitant]
     Indication: HEPATITIS C
     Route: 058
     Dates: start: 20120416, end: 20120423
  10. CANDESARTAN CILEXETIL [Concomitant]
     Route: 048
  11. LENDORMIN [Concomitant]
     Route: 048

REACTIONS (1)
  - SEPSIS [None]
